FAERS Safety Report 7010464 (Version 2)
Quarter: 2014Q3

REPORT INFORMATION
  Report Type: Spontaneous
  Country: US (occurrence: None)
  Receive Date: 20090526
  Receipt Date: 20140926
  Transmission Date: 20150326
  Serious: Yes (Other)
  Sender: FDA-Public Use
  Company Number: 2009S1004074

PATIENT
  Age: 76 Year
  Sex: Female

DRUGS (9)
  1. HYDROCHLOROTHIAZIDE (HYDROCHLOROTHIAZIDE) [Concomitant]
     Active Substance: HYDROCHLOROTHIAZIDE
  2. IRON (IRON) [Concomitant]
     Active Substance: IRON
  3. LASIX [Concomitant]
     Active Substance: FUROSEMIDE
  4. FERROUS SULFATE [Concomitant]
     Active Substance: FERROUS SULFATE\FERROUS SULFATE, DRIED
  5. PHOSPHO-SODA [Suspect]
     Active Substance: SODIUM PHOSPHATE, DIBASIC\SODIUM PHOSPHATE, MONOBASIC
     Indication: COLONOSCOPY
     Dosage: PO
     Route: 048
     Dates: start: 200604
  6. VITAMIN C [Concomitant]
     Active Substance: ASCORBIC ACID
  7. ACTONEL (RISEDRONATE SODIUM) [Concomitant]
  8. TYLENOL [Concomitant]
     Active Substance: ACETAMINOPHEN
  9. CALCIUM (CALCIUM) [Concomitant]
     Active Substance: CALCIUM

REACTIONS (17)
  - Skin lesion [None]
  - Muscle tightness [None]
  - Renal failure chronic [None]
  - Pyelonephritis [None]
  - Fluid retention [None]
  - Renal failure [None]
  - Nasopharyngitis [None]
  - Abdominal pain [None]
  - Tendonitis [None]
  - Tubulointerstitial nephritis [None]
  - Anaemia [None]
  - Back pain [None]
  - Fatigue [None]
  - Leukocytosis [None]
  - Dizziness [None]
  - Abdominal discomfort [None]
  - Abdominal distension [None]

NARRATIVE: CASE EVENT DATE: 20060901
